FAERS Safety Report 21816460 (Version 8)
Quarter: 2023Q1

REPORT INFORMATION
  Report Type: Report from Study
  Country: MX (occurrence: None)
  Receive Date: 20230104
  Receipt Date: 20230329
  Transmission Date: 20230418
  Serious: Yes (Hospitalization)
  Sender: FDA-Public Use
  Company Number: MX-ROCHE-3255047

PATIENT
  Age: 81 Year
  Sex: Female
  Weight: 55.7 kg

DRUGS (23)
  1. ATEZOLIZUMAB [Suspect]
     Active Substance: ATEZOLIZUMAB
     Indication: Hepatocellular carcinoma
     Dosage: DOSE LAST STUDY DRUG ADMIN PRIOR AE IS 1200 MG?DOSE LAST STUDY DRUG ADMIN PRIOR SAE IS 924 MG?START
     Route: 041
     Dates: start: 20220317
  2. BEVACIZUMAB [Suspect]
     Active Substance: BEVACIZUMAB
     Indication: Hepatocellular carcinoma
     Dosage: DOSE LAST STUDY DRUG ADMIN PRIOR AE AND SAE IS 924 MG?START DATE OF MOST RECENT DOSE OF STUDY DRUG P
     Route: 042
     Dates: start: 20220317
  3. OMEPRAZOLE [Concomitant]
     Active Substance: OMEPRAZOLE
     Dates: start: 2018
  4. OMEPRAZOLE [Concomitant]
     Active Substance: OMEPRAZOLE
     Dates: start: 20230106, end: 20230107
  5. OMEPRAZOLE [Concomitant]
     Active Substance: OMEPRAZOLE
     Route: 042
     Dates: start: 20230222, end: 20230223
  6. PROPRANOLOL HYDROCHLORIDE [Concomitant]
     Active Substance: PROPRANOLOL HYDROCHLORIDE
     Indication: Varices oesophageal
     Dates: start: 202009
  7. METRONIDAZOLE [Concomitant]
     Active Substance: METRONIDAZOLE
     Dates: start: 20230106, end: 20230112
  8. LACTULAX [Concomitant]
  9. SALINE [Concomitant]
     Active Substance: SODIUM CHLORIDE
     Dates: start: 20221231, end: 20230102
  10. LACTULOSE [Concomitant]
     Active Substance: LACTULOSE
     Dates: start: 20221231, end: 20230102
  11. LACTULOSE [Concomitant]
     Active Substance: LACTULOSE
     Dates: start: 20230106, end: 20230108
  12. HARTMANS SOLUTION [Concomitant]
     Dates: start: 20230106, end: 20230106
  13. HARTMANS SOLUTION [Concomitant]
     Dates: start: 20230106, end: 20230108
  14. HARTMANS SOLUTION [Concomitant]
     Dates: start: 20230225, end: 20230225
  15. SODIUM CHLORIDE [Concomitant]
     Active Substance: SODIUM CHLORIDE
     Dates: start: 20230106, end: 20230108
  16. SODIUM CHLORIDE [Concomitant]
     Active Substance: SODIUM CHLORIDE
     Dates: start: 20230222, end: 20230224
  17. SODIUM CHLORIDE [Concomitant]
     Active Substance: SODIUM CHLORIDE
     Dates: start: 20230224, end: 20230226
  18. ACETAMINOPHEN [Concomitant]
     Active Substance: ACETAMINOPHEN
     Dates: start: 20230222, end: 20230222
  19. LOPERAMIDE [Concomitant]
     Active Substance: LOPERAMIDE
     Route: 048
     Dates: start: 20230222, end: 20230223
  20. LOPERAMIDE [Concomitant]
     Active Substance: LOPERAMIDE
     Route: 048
     Dates: start: 20230223, end: 20230224
  21. METAMIZOLE [Concomitant]
     Active Substance: METAMIZOLE
     Dates: start: 20230222, end: 20230223
  22. PREDNISONE [Concomitant]
     Active Substance: PREDNISONE
     Route: 048
     Dates: start: 20230223
  23. RACECADOTRILO [Concomitant]
     Route: 048
     Dates: start: 20230223, end: 20230224

REACTIONS (2)
  - Encephalopathy [Recovered/Resolved with Sequelae]
  - Encephalopathy [Recovering/Resolving]

NARRATIVE: CASE EVENT DATE: 20221231
